FAERS Safety Report 19356268 (Version 1)
Quarter: 2021Q2

REPORT INFORMATION
  Report Type: Spontaneous
  Country: US (occurrence: US)
  Receive Date: 20210602
  Receipt Date: 20210602
  Transmission Date: 20210717
  Serious: No
  Sender: FDA-Public Use
  Company Number: US-CIPLA LTD.-2021US03826

PATIENT

DRUGS (2)
  1. COVID?19 VACCINE NOS. [Interacting]
     Active Substance: COVID-19 VACCINE NOS
     Indication: COVID-19 IMMUNISATION
     Dosage: UNK, 1 ST DOSE
     Route: 065
     Dates: start: 2021, end: 2021
  2. TENOFOVIR [Suspect]
     Active Substance: TENOFOVIR
     Indication: HEPATITIS B
     Dosage: UNK, DAILY
     Route: 065

REACTIONS (4)
  - Insomnia [Unknown]
  - Drug interaction [Unknown]
  - Product dose omission issue [Unknown]
  - Electric shock sensation [Unknown]

NARRATIVE: CASE EVENT DATE: 2021
